FAERS Safety Report 15093195 (Version 5)
Quarter: 2018Q3

REPORT INFORMATION
  Report Type: Report from Study
  Country: AU (occurrence: AU)
  Receive Date: 20180629
  Receipt Date: 20180925
  Transmission Date: 20181010
  Serious: Yes (Life-Threatening, Hospitalization)
  Sender: FDA-Public Use
  Company Number: AU-EISAI MEDICAL RESEARCH-EC-2018-037421

PATIENT
  Age: 77 Year
  Sex: Female
  Weight: 63.7 kg

DRUGS (36)
  1. EVEROLIMUS. [Suspect]
     Active Substance: EVEROLIMUS
     Dosage: UNKNOWN
     Route: 048
     Dates: start: 20180802, end: 20180823
  2. TRAMADOL. [Concomitant]
     Active Substance: TRAMADOL
  3. BUSCOPAN FORTE [Concomitant]
  4. COLECALCIFEROL [Concomitant]
     Active Substance: CHOLECALCIFEROL
  5. SODIUM BICARBONATE. [Concomitant]
     Active Substance: SODIUM BICARBONATE
  6. PREDNISONE. [Concomitant]
     Active Substance: PREDNISONE
  7. NORVASC [Concomitant]
     Active Substance: AMLODIPINE BESYLATE
  8. LENVATINIB [Suspect]
     Active Substance: LENVATINIB
     Route: 048
     Dates: start: 2018, end: 20180727
  9. BIOTENE NOS [Concomitant]
     Active Substance: CETYLPYRIDINIUM CHLORIDE OR SODIUM FLUORIDE OR SODIUM MONOFLUOROPHOSPHATE OR GLUCOSE OXIDASE\LACTOFERRIN\LACTOPEROXIDASE BOVINE\LYSOZYME
  10. NEBIVOLOL. [Concomitant]
     Active Substance: NEBIVOLOL
  11. FENTANYL TRANSDERMAL SYSTEM [Concomitant]
     Active Substance: FENTANYL
  12. DEXAMETHASONE. [Concomitant]
     Active Substance: DEXAMETHASONE
  13. CYCLIZINE [Concomitant]
     Active Substance: CYCLIZINE
  14. MACROGOL [Concomitant]
     Active Substance: POLYETHYLENE GLYCOLS
  15. EVEROLIMUS. [Suspect]
     Active Substance: EVEROLIMUS
     Indication: RENAL CELL CARCINOMA
     Route: 048
     Dates: start: 20180228, end: 20180321
  16. MS CONTIN [Concomitant]
     Active Substance: MORPHINE SULFATE
  17. ONDASETRON [Concomitant]
     Active Substance: ONDANSETRON
  18. LENVATINIB [Suspect]
     Active Substance: LENVATINIB
     Dosage: UNKNOWN
     Route: 048
     Dates: start: 20180802, end: 20180823
  19. DILAUDID [Concomitant]
     Active Substance: HYDROMORPHONE HYDROCHLORIDE
  20. GASTROSTOP [Concomitant]
  21. FRUSEMIDE [Concomitant]
     Active Substance: FUROSEMIDE
  22. PANTOPRAZOLE [Concomitant]
     Active Substance: PANTOPRAZOLE
  23. DOCUSATE?SENNA [Concomitant]
  24. METOCLOPRAMIDE. [Concomitant]
     Active Substance: METOCLOPRAMIDE
  25. SOMAC [Concomitant]
     Active Substance: PANTOPRAZOLE SODIUM
  26. LENVATINIB [Suspect]
     Active Substance: LENVATINIB
     Indication: RENAL CELL CARCINOMA
     Route: 048
     Dates: start: 20180228, end: 20180321
  27. EVEROLIMUS. [Suspect]
     Active Substance: EVEROLIMUS
     Route: 048
     Dates: start: 2018, end: 20180620
  28. PERINDORAL [Concomitant]
  29. AMLODIPINE [Concomitant]
     Active Substance: AMLODIPINE BESYLATE
  30. MAGNESIUM [Concomitant]
     Active Substance: MAGNESIUM
  31. PARACETAMOL [Concomitant]
     Active Substance: ACETAMINOPHEN
  32. LENVATINIB [Suspect]
     Active Substance: LENVATINIB
     Route: 048
     Dates: start: 2018, end: 20180620
  33. EVEROLIMUS. [Suspect]
     Active Substance: EVEROLIMUS
     Route: 048
     Dates: start: 2018, end: 20180727
  34. ATORVASTATIN [Concomitant]
     Active Substance: ATORVASTATIN
  35. ENOXAPARIN [Concomitant]
     Active Substance: ENOXAPARIN
  36. RANITIDINE. [Concomitant]
     Active Substance: RANITIDINE

REACTIONS (4)
  - Acute kidney injury [Recovered/Resolved]
  - Nausea [Not Recovered/Not Resolved]
  - Pyelonephritis [Recovered/Resolved]
  - Pneumonia [Unknown]

NARRATIVE: CASE EVENT DATE: 20180325
